FAERS Safety Report 8028462-1 (Version None)
Quarter: 2012Q1

REPORT INFORMATION
  Report Type: 
  Country: None (occurrence: None)
  Receive Date: 20120106
  Receipt Date: 20120103
  Transmission Date: 20120608
  Serious: Yes (Hospitalization, Other)
  Sender: FDA-Public Use
  Company Number: US-ABBOTT-11P-163-0881920-00

PATIENT
  Age: 50 Year
  Sex: Male

DRUGS (3)
  1. PROBIOTICS [Concomitant]
     Indication: GASTROINTESTINAL DISORDER
     Dosage: DAILY
     Route: 048
  2. CHOLESTYRAMINE [Concomitant]
     Indication: GASTROINTESTINAL DISORDER
     Route: 048
  3. HUMIRA [Suspect]
     Indication: CROHN'S DISEASE
     Dosage: FIRST DOSE
     Route: 058
     Dates: start: 20111101

REACTIONS (2)
  - CLOSTRIDIAL INFECTION [None]
  - MUSCLE SPASMS [None]
